FAERS Safety Report 9894143 (Version 3)
Quarter: 2014Q2

REPORT INFORMATION
  Report Type: Spontaneous
  Country: US (occurrence: US)
  Receive Date: 20140213
  Receipt Date: 20140408
  Transmission Date: 20141212
  Serious: No
  Sender: FDA-Public Use
  Company Number: US-PFIZER INC-2014038920

PATIENT
  Age: 59 Year
  Sex: Male
  Weight: 102 kg

DRUGS (1)
  1. PRISTIQ [Suspect]
     Indication: ESSENTIAL TREMOR
     Dosage: 50 MG, DAILY
     Dates: start: 20140129, end: 20140204

REACTIONS (6)
  - Drug ineffective [Unknown]
  - Mood altered [Recovered/Resolved]
  - Depressed mood [Recovered/Resolved]
  - Depression [Recovered/Resolved]
  - Fear [Recovered/Resolved]
  - Intentional product misuse [Recovered/Resolved]
